FAERS Safety Report 24095603 (Version 1)
Quarter: 2024Q3

REPORT INFORMATION
  Report Type: Spontaneous
  Country: SE (occurrence: SE)
  Receive Date: 20240716
  Receipt Date: 20240716
  Transmission Date: 20241016
  Serious: Yes (Hospitalization, Other)
  Sender: ACCORD
  Company Number: None

PATIENT
  Age: 76 Year
  Sex: Female
  Weight: 82 kg

DRUGS (9)
  1. DAPTOMYCIN [Suspect]
     Active Substance: DAPTOMYCIN
     Indication: Postoperative wound infection
     Dates: start: 20240702, end: 20240704
  2. AMLODIPINE [Concomitant]
     Active Substance: AMLODIPINE BESYLATE
     Dosage: STRENGTH: 6.95 MG, 5 MG
     Dates: start: 20240423
  3. ACETAMINOPHEN [Concomitant]
     Active Substance: ACETAMINOPHEN
     Dosage: STRENGTH: 1000 MG
     Dates: start: 20240611
  4. LOSARTAN [Concomitant]
     Active Substance: LOSARTAN
     Dosage: STRENGTH: 100 MG, 91.74 MG
  5. VANCOMYCIN [Concomitant]
     Active Substance: VANCOMYCIN
     Dosage: STRENGTH: 1000000 IU INTERNATIONAL UNIT(S), 1020 MG MILLIGRAM(S), 1000 MG MILLIGRAM(S)
     Dates: start: 20240630, end: 20240702
  6. CINACALCET HYDROCHLORIDE [Concomitant]
     Active Substance: CINACALCET HYDROCHLORIDE
     Dosage: STRENGTH: 30 MG, 33.06 MG
  7. PENICILLIN G [Concomitant]
     Active Substance: PENICILLIN G
     Dates: start: 20240702
  8. METOPROLOL SUCCINATE [Concomitant]
     Active Substance: METOPROLOL SUCCINATE
     Dosage: STRENGTH: 38.907 MG, 47.5 MG AND 50 MG
  9. VANCOMYCIN [Concomitant]
     Active Substance: VANCOMYCIN
     Dosage: STRENGTH: 1000000 IU INTERNATIONAL UNIT(S), 1020 MG MILLIGRAM(S), 1000 MG MILLIGRAM(S)
     Dates: start: 20240621, end: 20240629

REACTIONS (1)
  - Myositis [Recovering/Resolving]

NARRATIVE: CASE EVENT DATE: 20240703
